FAERS Safety Report 6293973-6 (Version None)
Quarter: 2009Q3

REPORT INFORMATION
  Report Type: 
  Country: None (occurrence: None)
  Receive Date: 20090803
  Receipt Date: 20080612
  Transmission Date: 20100115
  Serious: No
  Sender: FDA-Public Use
  Company Number: A0732835A

PATIENT
  Age: 39 Year
  Sex: Female

DRUGS (1)
  1. NICORETTE [Suspect]
     Dates: start: 20080610, end: 20080611

REACTIONS (1)
  - VOMITING [None]
